FAERS Safety Report 4828069-0 (Version None)
Quarter: 2005Q4

REPORT INFORMATION
  Report Type: 
  Country: None (occurrence: None)
  Receive Date: 20051114
  Receipt Date: 20051114
  Transmission Date: 20060501
  Serious: Yes (Life-Threatening, Hospitalization)
  Sender: FDA-Public Use
  Company Number: None

PATIENT
  Sex: Female

DRUGS (1)
  1. PIPERACILLIN/TAZOBACTAM   4.5 GRAM [Suspect]
     Indication: CHEST WALL ABSCESS
     Dosage: 4.5 GRAM   Q6H   IV
     Route: 042
     Dates: start: 20051002, end: 20051005

REACTIONS (1)
  - RENAL FAILURE ACUTE [None]
